FAERS Safety Report 13010293 (Version 9)
Quarter: 2017Q3

REPORT INFORMATION
  Report Type: Spontaneous
  Country: KR (occurrence: KR)
  Receive Date: 20161208
  Receipt Date: 20170824
  Transmission Date: 20171127
  Serious: Yes (Hospitalization, Other)
  Sender: FDA-Public Use
  Company Number: KR-009507513-1612KOR003307

PATIENT
  Age: 55 Year
  Sex: Male
  Weight: 73.2 kg

DRUGS (37)
  1. EMEND (FOSAPREPITANT DIMEGLUMINE) [Suspect]
     Active Substance: FOSAPREPITANT DIMEGLUMINE
     Indication: PROPHYLAXIS OF NAUSEA AND VOMITING
     Dosage: 150 MG, ONCE
     Route: 042
     Dates: start: 20160802, end: 20160802
  2. DEXAMETHASONE SODIUM PHOSPHATE. [Concomitant]
     Active Substance: DEXAMETHASONE SODIUM PHOSPHATE
     Indication: PROPHYLAXIS OF NAUSEA AND VOMITING
     Dosage: 20 MG, ONCE. STRENGTH: 5MG/ML
     Route: 042
     Dates: start: 20160802, end: 20160802
  3. EMEND (FOSAPREPITANT DIMEGLUMINE) [Suspect]
     Active Substance: FOSAPREPITANT DIMEGLUMINE
     Dosage: 150 MG, ONCE
     Route: 042
     Dates: start: 20160920, end: 20160920
  4. DEXAMETHASONE SODIUM PHOSPHATE. [Concomitant]
     Active Substance: DEXAMETHASONE SODIUM PHOSPHATE
     Dosage: 20 MG, BID. STRENGTH: 5MG/ML
     Route: 042
     Dates: start: 20160823, end: 20160823
  5. SANCUSO [Concomitant]
     Active Substance: GRANISETRON
     Dosage: 1 EA, QD; STRENGTH 80.2X66.6MM2
     Route: 062
     Dates: start: 20160822, end: 20160828
  6. CHLORPHENIRAMINE MALEATE. [Concomitant]
     Active Substance: CHLORPHENIRAMINE MALEATE
     Dosage: 4 MG, ONCE
     Route: 042
     Dates: start: 20160920, end: 20160920
  7. ANZATAX (PACLITAXEL) [Concomitant]
     Active Substance: PACLITAXEL
     Dosage: 318.5 MG, ONCE; CYCLE 2
     Route: 042
     Dates: start: 20160823, end: 20160823
  8. DEXAMETHASONE SODIUM PHOSPHATE. [Concomitant]
     Active Substance: DEXAMETHASONE SODIUM PHOSPHATE
     Dosage: 5 MG, QD. STRENGTH: 5MG/ML
     Route: 042
     Dates: start: 20160922, end: 20160923
  9. SANCUSO [Concomitant]
     Active Substance: GRANISETRON
     Indication: PROPHYLAXIS OF NAUSEA AND VOMITING
     Dosage: 1 EA, QD; STRENGTH 80.2X66.6MM2
     Route: 062
     Dates: start: 20160801, end: 20160807
  10. PENNEL [Concomitant]
     Indication: LIVER FUNCTION TEST INCREASED
     Dosage: 1 CAPSULE, TID
     Route: 048
     Dates: start: 20160801, end: 20161005
  11. CHLORPHENIRAMINE MALEATE. [Concomitant]
     Active Substance: CHLORPHENIRAMINE MALEATE
     Indication: PROPHYLAXIS
     Dosage: 4 MG, ONCE
     Route: 042
     Dates: start: 20160802, end: 20160802
  12. CURAN [Concomitant]
     Active Substance: RANITIDINE HYDROCHLORIDE
     Dosage: 50 MG, QD; CONCENTRATION: 50MG/2ML
     Route: 042
     Dates: start: 20160922, end: 20160923
  13. ANZATAX (PACLITAXEL) [Concomitant]
     Active Substance: PACLITAXEL
     Indication: GASTRIC CANCER
     Dosage: 320 MG, ONCE; CYCLE 1
     Route: 042
     Dates: start: 20160802, end: 20160802
  14. ANZATAX (PACLITAXEL) [Concomitant]
     Active Substance: PACLITAXEL
     Dosage: 322 MG, ONCE; CYCLE 3
     Route: 042
     Dates: start: 20160920, end: 20160920
  15. SANCUSO [Concomitant]
     Active Substance: GRANISETRON
     Dosage: 1 EA, QD; STRENGTH 80.2X66.6MM2
     Route: 062
     Dates: start: 20160919, end: 20160925
  16. CENTRUM (MINERALS (UNSPECIFIED) (+) VITAMINS (UNSPECIFIED)) [Concomitant]
     Indication: PROPHYLAXIS
     Dosage: 1 TABLET, DAILY
     Route: 048
     Dates: start: 20160426, end: 20161003
  17. CURAN [Concomitant]
     Active Substance: RANITIDINE HYDROCHLORIDE
     Dosage: 50 MG, ONCE; CONCENTRATION: 50MG/2ML
     Route: 042
     Dates: start: 20160920, end: 20160920
  18. LASIX [Concomitant]
     Active Substance: FUROSEMIDE
     Indication: PROPHYLAXIS
     Dosage: 20 MG, ONCE; STRENGTH: 20MG/2ML
     Route: 042
     Dates: start: 20160802, end: 20160802
  19. DEXAMETHASONE SODIUM PHOSPHATE. [Concomitant]
     Active Substance: DEXAMETHASONE SODIUM PHOSPHATE
     Dosage: 12 MG, ONCE. STRENGTH: 5MG/ML
     Route: 042
     Dates: start: 20160920, end: 20160920
  20. LASIX [Concomitant]
     Active Substance: FUROSEMIDE
     Dosage: 20 MG, ONCE; STRENGTH: 20MG/2ML
     Route: 042
     Dates: start: 20160823, end: 20160823
  21. CISPLAN [Concomitant]
     Active Substance: CISPLATIN
     Dosage: 109.2 MG, ONCE; STRENGTH: 50MG/100ML; CYCLE 2
     Route: 042
     Dates: start: 20160823, end: 20160823
  22. DEXAMETHASONE. [Concomitant]
     Active Substance: DEXAMETHASONE
     Dosage: 4 MG, BID
     Route: 048
     Dates: start: 20160824, end: 20160826
  23. DARBEPOETIN ALFA [Concomitant]
     Active Substance: DARBEPOETIN ALFA
     Indication: ANAEMIA
     Dosage: 500 MICROGRAM, ONCE
     Route: 042
     Dates: start: 20160802, end: 20160802
  24. LYRICA [Concomitant]
     Active Substance: PREGABALIN
     Indication: NEUROPATHY PERIPHERAL
     Dosage: 75 MG, BID
     Route: 048
     Dates: start: 20160808, end: 20160828
  25. EMEND (FOSAPREPITANT DIMEGLUMINE) [Suspect]
     Active Substance: FOSAPREPITANT DIMEGLUMINE
     Dosage: 150 MG, ONCE
     Route: 042
     Dates: start: 20160823, end: 20160823
  26. CURAN [Concomitant]
     Active Substance: RANITIDINE HYDROCHLORIDE
     Indication: PROPHYLAXIS
     Dosage: 50 MG, ONCE; CONCENTRATION: 50MG/2ML
     Route: 042
     Dates: start: 20160802, end: 20160802
  27. CURAN [Concomitant]
     Active Substance: RANITIDINE HYDROCHLORIDE
     Dosage: 50 MG, ONCE; CONCENTRATION: 50MG/2ML
     Route: 042
     Dates: start: 20160823, end: 20160823
  28. CURAN [Concomitant]
     Active Substance: RANITIDINE HYDROCHLORIDE
     Dosage: 150 MG, BID
     Route: 048
     Dates: start: 20160824, end: 20160826
  29. MATRIFEN [Concomitant]
     Active Substance: FENTANYL
     Indication: CANCER PAIN
     Dosage: 25 MICROGRAM, QD; CONCENTRATION: 25 MICROGRAM/H8.4 CM2
     Route: 062
     Dates: start: 20160328
  30. DARBEPOETIN ALFA [Concomitant]
     Active Substance: DARBEPOETIN ALFA
     Dosage: 480 MICROGRAM, ONCE
     Route: 042
     Dates: start: 20160823, end: 20160823
  31. LYRICA [Concomitant]
     Active Substance: PREGABALIN
     Dosage: 75 MG, BID
     Route: 048
     Dates: start: 20160829, end: 20161005
  32. CISPLAN [Concomitant]
     Active Substance: CISPLATIN
     Indication: GASTRIC CANCER
     Dosage: 109.8 MG, ONCE; STRENGTH: 50MG/100ML; CYCLE 1
     Route: 042
     Dates: start: 20160802, end: 20160802
  33. CISPLAN [Concomitant]
     Active Substance: CISPLATIN
     Dosage: 110.4 MG, ONCE. STRENGTH: 50MG/100ML; CYCLE 3
     Route: 042
     Dates: start: 20160920, end: 20160920
  34. DEXAMETHASONE. [Concomitant]
     Active Substance: DEXAMETHASONE
     Indication: PROPHYLAXIS OF NAUSEA AND VOMITING
     Dosage: 4 MG, BID
     Route: 048
     Dates: start: 20160803, end: 20160805
  35. URSA TABLETS [Concomitant]
     Indication: LIVER FUNCTION TEST INCREASED
     Dosage: 200 MG, TID
     Route: 048
     Dates: start: 20160316, end: 20160731
  36. CHLORPHENIRAMINE MALEATE. [Concomitant]
     Active Substance: CHLORPHENIRAMINE MALEATE
     Dosage: 4 MG, ONCE
     Route: 042
     Dates: start: 20160823, end: 20160823
  37. CURAN [Concomitant]
     Active Substance: RANITIDINE HYDROCHLORIDE
     Indication: PROPHYLAXIS
     Dosage: 150 MG, BID
     Route: 048
     Dates: start: 20160803, end: 20160805

REACTIONS (6)
  - Bacterial infection [Recovered/Resolved]
  - Paraesthesia [Recovered/Resolved]
  - Tumour haemorrhage [Recovered/Resolved]
  - Neutropenia [Recovered/Resolved]
  - Arthralgia [Recovered/Resolved]
  - Neutropenia [Recovered/Resolved]

NARRATIVE: CASE EVENT DATE: 20160808
